FAERS Safety Report 8510413 (Version 2)
Quarter: 2013Q4

REPORT INFORMATION
  Report Type: Spontaneous
  Country: US (occurrence: US)
  Receive Date: 20120413
  Receipt Date: 20131016
  Transmission Date: 20140711
  Serious: Yes (Hospitalization, Other)
  Sender: FDA-Public Use
  Company Number: US-ROCHE-793782

PATIENT
  Age: 36 Year
  Sex: Male
  Weight: 86.26 kg

DRUGS (1)
  1. ACCUTANE [Suspect]
     Indication: ACNE
     Route: 065
     Dates: start: 1986, end: 1990

REACTIONS (5)
  - Diverticulitis [Unknown]
  - Inflammatory bowel disease [Unknown]
  - Large intestine perforation [Unknown]
  - Colonic abscess [Unknown]
  - Umbilical hernia [Unknown]
